FAERS Safety Report 12708648 (Version 1)
Quarter: 2016Q3

REPORT INFORMATION
  Report Type: Spontaneous
  Country: PL (occurrence: PL)
  Receive Date: 20160901
  Receipt Date: 20160901
  Transmission Date: 20161109
  Serious: Yes (Life-Threatening)
  Sender: FDA-Public Use
  Company Number: PL-GE HEALTHCARE MEDICAL DIAGNOSTICS-OMPQ-PR-1608S-1592

PATIENT
  Age: 67 Year
  Sex: Female
  Weight: 80 kg

DRUGS (3)
  1. CORHYDRON [Concomitant]
     Dates: start: 20160830, end: 20160830
  2. OMNIPAQUE [Suspect]
     Active Substance: IOHEXOL
     Indication: DIAGNOSTIC PROCEDURE
  3. OMNIPAQUE [Suspect]
     Active Substance: IOHEXOL
     Indication: PRODUCT USED FOR UNKNOWN INDICATION
     Route: 042
     Dates: start: 20160830, end: 20160830

REACTIONS (7)
  - Urinary incontinence [Unknown]
  - Circulatory collapse [Unknown]
  - Nausea [Unknown]
  - Erythema [Unknown]
  - Dyspnoea [Unknown]
  - Apnoea [Unknown]
  - Seizure [Unknown]

NARRATIVE: CASE EVENT DATE: 20160830
